FAERS Safety Report 17435707 (Version 1)
Quarter: 2020Q1

REPORT INFORMATION
  Report Type: Spontaneous
  Country: AT (occurrence: AT)
  Receive Date: 20200219
  Receipt Date: 20200219
  Transmission Date: 20200409
  Serious: Yes (Other)
  Sender: FDA-Public Use
  Company Number: AT-BRACCO-2020AT00727

PATIENT
  Age: 77 Year
  Sex: Male
  Weight: 85 kg

DRUGS (1)
  1. JOPAMIRO 370 [Suspect]
     Active Substance: IOPAMIDOL
     Indication: ANGIOGRAM
     Dosage: 194 ML, SINGLE
     Dates: start: 20200131, end: 20200131

REACTIONS (9)
  - Hypertensive crisis [Recovered/Resolved]
  - Motor dysfunction [Recovered/Resolved]
  - Headache [Recovered/Resolved]
  - Delirium [Recovered/Resolved]
  - Personality change [Recovered/Resolved]
  - Vomiting [Recovered/Resolved]
  - Nausea [Recovered/Resolved]
  - Aphasia [Recovered/Resolved]
  - Pyrexia [Recovered/Resolved]

NARRATIVE: CASE EVENT DATE: 20200131
